FAERS Safety Report 21157325 (Version 2)
Quarter: 2022Q3

REPORT INFORMATION
  Report Type: Spontaneous
  Country: CN (occurrence: CN)
  Receive Date: 20220801
  Receipt Date: 20220818
  Transmission Date: 20221027
  Serious: Yes (Disabling)
  Sender: FDA-Public Use
  Company Number: CN-BAYER-2022A073697

PATIENT
  Age: 52 Year
  Sex: Male

DRUGS (2)
  1. AVELOX [Suspect]
     Active Substance: MOXIFLOXACIN HYDROCHLORIDE
     Indication: Bronchitis
     Dosage: UNK
     Route: 048
     Dates: start: 20140623, end: 2017
  2. ROXITHROMYCIN [Concomitant]
     Active Substance: ROXITHROMYCIN
     Indication: Bronchitis chronic
     Dosage: UNK
     Dates: start: 2017

REACTIONS (3)
  - Aortic aneurysm [Not Recovered/Not Resolved]
  - Intentional product misuse [None]
  - Suspected product quality issue [None]

NARRATIVE: CASE EVENT DATE: 20210426
